FAERS Safety Report 15202015 (Version 1)
Quarter: 2018Q3

REPORT INFORMATION
  Report Type: Spontaneous
  Country: GB (occurrence: GB)
  Receive Date: 20180726
  Receipt Date: 20180726
  Transmission Date: 20181010
  Serious: Yes (Other)
  Sender: FDA-Public Use
  Company Number: GB-TEVA-2018-GB-930603

PATIENT
  Age: 74 Year
  Sex: Female
  Weight: 60 kg

DRUGS (16)
  1. ATORVASTATIN [Concomitant]
     Active Substance: ATORVASTATIN
     Dosage: 1 DOSAGE FORMS DAILY;
     Dates: start: 20170117
  2. HYOSCINE BUTYLBROMIDE [Concomitant]
     Active Substance: BUTYLSCOPOLAMINE
     Dosage: TAKE TWO UP TO 4 TIMES/DAY.
     Dates: start: 20170117
  3. DOXAZOSIN [Suspect]
     Active Substance: DOXAZOSIN\DOXAZOSIN MESYLATE
     Dates: start: 20180620
  4. ESOMEPRAZOLE [Concomitant]
     Active Substance: ESOMEPRAZOLE
     Dosage: 1 DOSAGE FORMS DAILY; AT NIGHT
     Dates: start: 20170117
  5. ISPAGHULA EXTRACT\PSYLLIUM [Concomitant]
     Active Substance: HERBALS\PLANTAGO OVATA SEED\PLANTAGO SEED
     Dosage: 2 DOSAGE FORMS DAILY;
     Dates: start: 20170207
  6. NITROFURANTOIN. [Concomitant]
     Active Substance: NITROFURANTOIN
     Dosage: 2 DOSAGE FORMS DAILY;
     Dates: start: 20180606, end: 20180609
  7. MOMETASONE [Concomitant]
     Active Substance: MOMETASONE
     Dosage: 1?2 TWICE DAILY
     Dates: start: 20170117
  8. TRAMADOL. [Concomitant]
     Active Substance: TRAMADOL
     Indication: PAIN
     Dosage: TAKE ONE TO TWO UP TO 4 TIMES A DAY.
     Dates: start: 20180608, end: 20180609
  9. SOLIFENACIN [Concomitant]
     Active Substance: SOLIFENACIN
     Dosage: 1 DOSAGE FORMS DAILY;
     Dates: start: 20170117
  10. AMLODIPINE [Concomitant]
     Active Substance: AMLODIPINE BESYLATE
     Dosage: 1 DOSAGE FORMS DAILY;
     Dates: start: 20170117
  11. MOVELAT [Concomitant]
     Dosage: AS DIRECTED
     Dates: start: 20170117
  12. FEXOFENADINE [Concomitant]
     Active Substance: FEXOFENADINE\FEXOFENADINE HYDROCHLORIDE
     Dosage: .25 DOSAGE FORMS DAILY;
     Dates: start: 20170117
  13. CELECOXIB. [Concomitant]
     Active Substance: CELECOXIB
     Indication: ARTHRALGIA
     Dosage: TAKE ONE OR TWO DAILY.
     Dates: start: 20170822, end: 20180416
  14. GLANDOSANE [Concomitant]
     Dosage: USE AS DIRECTED
     Dates: start: 20170117
  15. PAROXETINE. [Concomitant]
     Active Substance: PAROXETINE
     Dosage: .5 DOSAGE FORMS DAILY;
     Dates: start: 20170220
  16. GAVISCON ADVANCE [Concomitant]
     Active Substance: POTASSIUM BICARBONATE\SODIUM ALGINATE
     Dosage: 5ML OR 10ML 4 TIMES/DAY
     Dates: start: 20180301

REACTIONS (1)
  - Nausea [Recovered/Resolved]

NARRATIVE: CASE EVENT DATE: 20180620
